FAERS Safety Report 8450140-5 (Version None)
Quarter: 2012Q2

REPORT INFORMATION
  Report Type: 
  Country: None (occurrence: None)
  Receive Date: 20120620
  Receipt Date: 20120613
  Transmission Date: 20120825
  Serious: Yes (Hospitalization, Other)
  Sender: FDA-Public Use
  Company Number: US-CELGENEUS-163-21880-11031773

PATIENT
  Sex: Female
  Weight: 78.088 kg

DRUGS (23)
  1. ALBUTEROL [Concomitant]
     Indication: COUGH
     Dosage: 18 MICROGRAM
     Route: 055
  2. ALBUTEROL [Concomitant]
     Indication: RESPIRATORY TRACT CONGESTION
     Route: 055
  3. CALCIUM/VITAMIN D3 [Concomitant]
     Dosage: 600MG/400 UNITS, 2 TABLES
     Route: 048
  4. PERCOCET [Concomitant]
     Indication: PAIN
     Dosage: 325 MILLIGRAM
     Route: 048
  5. POLYETHYLENE GLYCOL [Concomitant]
     Indication: CONSTIPATION
     Dosage: 17 GRAM
     Route: 048
  6. PSEUDO 60/TRIPROLIDINE [Concomitant]
     Dosage: 2.5 MILLIGRAM
     Route: 048
  7. SODIUM CHLORIDE [Concomitant]
     Dosage: 2 DOSAGE FORMS
     Route: 045
  8. REVLIMID [Suspect]
     Route: 048
     Dates: start: 20110701, end: 20110901
  9. DEXAMETHASONE [Concomitant]
     Indication: INFLAMMATION
     Dosage: 40 MILLIGRAM
     Route: 048
     Dates: start: 20100901
  10. MULTI-VITAMINS [Concomitant]
     Dosage: 1 TABLET
     Route: 048
  11. VALACYCLOVIR HYDROCHLORIDE [Concomitant]
     Indication: INFECTION
     Dosage: 500 MILLIGRAM
     Route: 048
  12. ALPRAZOLAM [Concomitant]
     Dosage: .25 MICROGRAM
     Route: 048
  13. REVLIMID [Suspect]
     Indication: MULTIPLE MYELOMA
     Dosage: 10 MILLIGRAM
     Route: 048
     Dates: start: 20100801, end: 20110701
  14. REVLIMID [Suspect]
     Route: 048
     Dates: start: 20110901, end: 20111001
  15. REVLIMID [Suspect]
     Route: 048
     Dates: start: 20111101, end: 20111201
  16. NEURONTIN [Concomitant]
     Dosage: 300 MILLIGRAM
     Route: 048
  17. ASPIRIN [Concomitant]
     Dosage: 81 MILLIGRAM
     Route: 048
  18. DOCUSATE SODIUM [Concomitant]
     Dosage: 100 MILLIGRAM
     Route: 048
  19. FENTANYL [Concomitant]
     Indication: PAIN
     Dosage: 25 MICROGRAM
     Route: 062
  20. VITAMIN D [Concomitant]
     Route: 065
  21. POTASSIUM CHLORIDE [Concomitant]
     Route: 065
  22. CITALOPRAM HYDROBROMIDE [Concomitant]
     Dosage: 40 MILLIGRAM
     Route: 048
  23. OMEPRAZOLE [Concomitant]
     Dosage: 20 MILLIGRAM
     Route: 048

REACTIONS (7)
  - INFLAMMATION [None]
  - UPPER RESPIRATORY TRACT INFECTION [None]
  - MALAISE [None]
  - LIGHT CHAIN ANALYSIS INCREASED [None]
  - PROTEIN URINE PRESENT [None]
  - TRANSITIONAL CELL CARCINOMA [None]
  - MONOCLONAL IMMUNOGLOBULIN PRESENT [None]
